FAERS Safety Report 6423059-9 (Version None)
Quarter: 2009Q4

REPORT INFORMATION
  Report Type: 
  Country: None (occurrence: None)
  Receive Date: 20091102
  Receipt Date: 20091021
  Transmission Date: 20100525
  Serious: Yes (Hospitalization)
  Sender: FDA-Public Use
  Company Number: DK-JNJFOC-20091007301

PATIENT
  Sex: Male

DRUGS (4)
  1. REMICADE [Suspect]
     Indication: ACUTE FEBRILE NEUTROPHILIC DERMATOSIS
     Dosage: 2 INFUSIONS
     Route: 042
     Dates: start: 20070101
  2. PREDNISOLONE [Suspect]
     Indication: ARTHRITIS
  3. SALAZOPYRIN [Suspect]
     Indication: ACUTE FEBRILE NEUTROPHILIC DERMATOSIS
  4. METHOTREXATE [Suspect]
     Indication: ACUTE FEBRILE NEUTROPHILIC DERMATOSIS

REACTIONS (3)
  - DISEASE PROGRESSION [None]
  - DRUG INEFFECTIVE [None]
  - MYCOBACTERIAL INFECTION [None]
